FAERS Safety Report 4882443-5 (Version None)
Quarter: 2006Q1

REPORT INFORMATION
  Report Type: 
  Country: None (occurrence: None)
  Receive Date: 20060113
  Receipt Date: 20051219
  Transmission Date: 20060701
  Serious: Yes (Hospitalization, Disabling)
  Sender: FDA-Public Use
  Company Number: 414262

PATIENT
  Age: 17 Year
  Sex: Female
  Weight: 45.8 kg

DRUGS (3)
  1. ACCUTANE [Suspect]
     Indication: ACNE
     Dosage: 40 MG DAILY, ORAL
     Route: 048
     Dates: start: 19980713, end: 20000622
  2. BACTRIM DS (SULFAMTHOXAZOLE/TRIMETHOPRIM) [Concomitant]
  3. DRYSOL (ALUMINUM CHLORIDE) [Concomitant]

REACTIONS (75)
  - ABDOMINAL PAIN [None]
  - ADHESION [None]
  - AKATHISIA [None]
  - ANAEMIA [None]
  - ANKYLOSING SPONDYLITIS [None]
  - ANOREXIA [None]
  - ANXIETY [None]
  - ARTHRALGIA [None]
  - ARTHROPOD BITE [None]
  - ASTHENIA [None]
  - BACK PAIN [None]
  - BLOOD CHOLESTEROL INCREASED [None]
  - BLOOD TRIGLYCERIDES INCREASED [None]
  - BODY TINEA [None]
  - CHEILITIS [None]
  - CHEST DISCOMFORT [None]
  - COLITIS [None]
  - COLITIS ULCERATIVE [None]
  - COMPUTERISED TOMOGRAM ABDOMEN ABNORMAL [None]
  - DEPRESSION [None]
  - DIARRHOEA HAEMORRHAGIC [None]
  - DISEASE RECURRENCE [None]
  - DISTURBANCE IN ATTENTION [None]
  - DIZZINESS [None]
  - DRUG INEFFECTIVE [None]
  - DRY SKIN [None]
  - DYSPEPSIA [None]
  - DYSPNOEA [None]
  - EMOTIONAL DISTRESS [None]
  - ERYTHEMA [None]
  - EYE IRRITATION [None]
  - FACE OEDEMA [None]
  - FATIGUE [None]
  - FLAT FEET [None]
  - FRUSTRATION [None]
  - GASTRITIS [None]
  - GASTROINTESTINAL DISORDER [None]
  - GASTROOESOPHAGEAL REFLUX DISEASE [None]
  - HAEMORRHOIDS [None]
  - HEPATIC ENZYME INCREASED [None]
  - HYPERHIDROSIS [None]
  - ILEUS [None]
  - INSOMNIA [None]
  - INTESTINAL HAEMORRHAGE [None]
  - JOINT SPRAIN [None]
  - MELAENA [None]
  - MULTI-ORGAN DISORDER [None]
  - MUSCLE SPASMS [None]
  - MUSCLE STRAIN [None]
  - NAUSEA [None]
  - NIGHT BLINDNESS [None]
  - OEDEMA PERIPHERAL [None]
  - OSTEOARTHRITIS [None]
  - PAIN [None]
  - PHARYNGITIS [None]
  - PHARYNGOLARYNGEAL PAIN [None]
  - PITYRIASIS [None]
  - POST PROCEDURAL COMPLICATION [None]
  - POUCHITIS [None]
  - PRURITUS [None]
  - RADICULOPATHY [None]
  - RASH [None]
  - RECTAL HAEMORRHAGE [None]
  - SCOLIOSIS [None]
  - SELF ESTEEM DECREASED [None]
  - SINUSITIS [None]
  - SKIN DISORDER [None]
  - SKIN LESION [None]
  - SKIN REACTION [None]
  - SLEEP DISORDER [None]
  - SMALL INTESTINAL OBSTRUCTION [None]
  - SWELLING FACE [None]
  - ULCER [None]
  - VISION BLURRED [None]
  - WEIGHT DECREASED [None]
